FAERS Safety Report 22029355 (Version 2)
Quarter: 2023Q1

REPORT INFORMATION
  Report Type: Report from Study
  Country: JP (occurrence: JP)
  Receive Date: 20230223
  Receipt Date: 20230329
  Transmission Date: 20230417
  Serious: Yes (Hospitalization, Other)
  Sender: FDA-Public Use
  Company Number: JP-MYLANLABS-2023M1020278

PATIENT
  Age: 54 Year
  Sex: Male
  Weight: 41.7 kg

DRUGS (11)
  1. ADALIMUMAB [Suspect]
     Active Substance: ADALIMUMAB
     Indication: Crohn^s disease
     Dosage: 160 MILLIGRAM, Q2W
     Route: 058
     Dates: start: 20221007, end: 20221020
  2. ADALIMUMAB [Suspect]
     Active Substance: ADALIMUMAB
     Dosage: 80 MILLIGRAM, Q2W
     Route: 058
     Dates: start: 20221021, end: 20221030
  3. ADALIMUMAB [Suspect]
     Active Substance: ADALIMUMAB
     Dosage: 40 MILLIGRAM, Q2W
     Route: 058
     Dates: start: 20221031, end: 20230114
  4. FLAGYL [Concomitant]
     Active Substance: METRONIDAZOLE\METRONIDAZOLE HYDROCHLORIDE
     Dosage: 750 MILLIGRAM, QD (FROM 30-NOV-2022 TO 06-DEC-2022)
     Route: 048
  5. LEVOFLOXACIN [Concomitant]
     Active Substance: LEVOFLOXACIN
     Dosage: 500 MILLIGRAM, QD (FROM 30-NOV-2022 TO 13-DEC-2022)
     Route: 048
  6. SENNOSIDES [Concomitant]
     Active Substance: SENNOSIDES
     Dosage: 12 MILLIGRAM (AS NEEDED)
     Route: 048
  7. Azunol [Concomitant]
     Dosage: UNK
     Route: 065
  8. MAGNESIUM OXIDE [Concomitant]
     Active Substance: MAGNESIUM OXIDE
     Dosage: 990 MILLIGRAM, QD
     Route: 048
     Dates: start: 20221015, end: 20221019
  9. MAGNESIUM OXIDE [Concomitant]
     Active Substance: MAGNESIUM OXIDE
     Dosage: 660 MILLIGRAM
     Route: 048
     Dates: start: 20221020
  10. MIYA-BM [Concomitant]
     Active Substance: CLOSTRIDIUM BUTYRICUM SPORES STRAIN M-55
     Dosage: 3 GRAM, QD (SINCE 24-JAN-2023)
     Route: 048
  11. MEROPENEM [Concomitant]
     Active Substance: MEROPENEM
     Dosage: 0.5 MILLIGRAM, QD (SINCE 23-JAN-2023)
     Route: 042

REACTIONS (3)
  - Anal abscess [Recovering/Resolving]
  - COVID-19 [Recovered/Resolved]
  - Inappropriate schedule of product administration [Unknown]

NARRATIVE: CASE EVENT DATE: 20221031
